FAERS Safety Report 8542997-4 (Version None)
Quarter: 2012Q3

REPORT INFORMATION
  Report Type: 
  Country: None (occurrence: None)
  Receive Date: 20120727
  Receipt Date: 20120720
  Transmission Date: 20120928
  Serious: Yes (Hospitalization, Other)
  Sender: FDA-Public Use
  Company Number: US-JNJFOC-20120613493

PATIENT
  Sex: Male

DRUGS (3)
  1. LORTAB [Concomitant]
     Indication: BACK PAIN
     Dosage: ON 6-11, 10/500
     Route: 065
  2. NUCYNTA ER [Suspect]
     Indication: BACK PAIN
     Dosage: THREE TIMES A DAY
     Route: 048
     Dates: start: 20120515, end: 20120517
  3. NUCYNTA ER [Suspect]
     Dosage: 4 TIMES A DAY
     Route: 048
     Dates: start: 20120611, end: 20120613

REACTIONS (4)
  - SOMNOLENCE [None]
  - DYSPNOEA [None]
  - TACHYCARDIA [None]
  - CHEST PAIN [None]
